FAERS Safety Report 4369605-0 (Version None)
Quarter: 2004Q2

REPORT INFORMATION
  Report Type: 
  Country: None (occurrence: None)
  Receive Date: 20040527
  Receipt Date: 20040511
  Transmission Date: 20050107
  Serious: Yes (Hospitalization)
  Sender: FDA-Public Use
  Company Number: 2004-DE-02763GD

PATIENT
  Age: 9 Year
  Sex: Male

DRUGS (4)
  1. CYCLOPHOSPHAMIDE [Suspect]
     Dosage: 120 MG/KG
  2. METHOTREXATE [Suspect]
     Indication: IMMUNOSUPPRESSION
     Dosage: 4 COURSES
  3. THYMOGLOBULIN (ANTITHYMOCYTE IMMUNOGLOBULIN) [Suspect]
     Indication: IMMUNOSUPPRESSION
     Dosage: 6 MG/KG DURING THE CONDITIONING
  4. CYCLOSPORINE [Suspect]
     Indication: IMMUNOSUPPRESSION

REACTIONS (12)
  - ABDOMINAL PAIN [None]
  - ALANINE AMINOTRANSFERASE INCREASED [None]
  - BACTERIAL INFECTION [None]
  - BLOOD BILIRUBIN INCREASED [None]
  - DIARRHOEA [None]
  - DRUG INEFFECTIVE [None]
  - FUNGAL INFECTION [None]
  - GRAFT VERSUS HOST DISEASE [None]
  - MARKEDLY REDUCED DIETARY INTAKE [None]
  - RASH MACULO-PAPULAR [None]
  - STEM CELL TRANSPLANT [None]
  - VIRAL INFECTION [None]
